FAERS Safety Report 10016482 (Version 3)
Quarter: 2014Q2

REPORT INFORMATION
  Report Type: Report from Study
  Country: DO (occurrence: DO)
  Receive Date: 20140317
  Receipt Date: 20140429
  Transmission Date: 20141212
  Serious: Yes (Life-Threatening, Other)
  Sender: FDA-Public Use
  Company Number: DO-GILEAD-2014-0094971

PATIENT
  Age: 56 Year
  Sex: Male
  Weight: 187 kg

DRUGS (11)
  1. ELVITEGRAVIR/EMTRICITABINE/TENOFOVIR DF/COBICISTAT [Suspect]
     Indication: HIV INFECTION
     Dosage: 1 DF, QD
     Route: 048
     Dates: start: 20120712, end: 20140306
  2. INSULIN [Concomitant]
     Indication: DIABETES MELLITUS
     Dosage: UNK
     Route: 065
     Dates: start: 201106, end: 20131118
  3. GLIBENCLAMIDE [Concomitant]
     Indication: DIABETES MELLITUS
     Dosage: UNK
     Route: 065
     Dates: start: 20131118
  4. CHLORPROMAZIN [Concomitant]
     Indication: HICCUPS
     Dosage: 100 MG, QD
     Route: 065
  5. RANITIDINE [Concomitant]
     Indication: PROPHYLAXIS
  6. FOSFOMYCIN [Concomitant]
     Dosage: UNK
     Dates: start: 20140304
  7. CALCIUM [Concomitant]
  8. VITAMIN D3 [Concomitant]
  9. FISH OIL [Concomitant]
  10. PROPINOX                           /01471401/ [Concomitant]
     Dosage: UNK
     Dates: end: 20140308
  11. CLONIXIN LYSINATE [Concomitant]
     Dosage: UNK
     Dates: end: 20140308

REACTIONS (2)
  - Anaemia [Recovered/Resolved]
  - Diabetes mellitus [Recovered/Resolved]
